FAERS Safety Report 7304010-6 (Version None)
Quarter: 2011Q1

REPORT INFORMATION
  Report Type: 
  Country: None (occurrence: None)
  Receive Date: 20110221
  Receipt Date: 20110215
  Transmission Date: 20110831
  Serious: Yes (Hospitalization)
  Sender: FDA-Public Use
  Company Number: US-MERCK-1102USA01927

PATIENT
  Age: 66 Year
  Sex: Female

DRUGS (2)
  1. BONIVA [Suspect]
     Route: 065
     Dates: start: 20070201
  2. FOSAMAX [Suspect]
     Route: 048
     Dates: start: 19960201, end: 20070201

REACTIONS (3)
  - FEMUR FRACTURE [None]
  - PAIN IN EXTREMITY [None]
  - OSTEOARTHRITIS [None]
